FAERS Safety Report 5136041-9 (Version None)
Quarter: 2006Q4

REPORT INFORMATION
  Report Type: 
  Country: None (occurrence: None)
  Receive Date: 20061023
  Receipt Date: 20061010
  Transmission Date: 20070319
  Serious: Yes (Hospitalization, Disabling)
  Sender: FDA-Public Use
  Company Number: MEDI-0004891

PATIENT
  Sex: Female

DRUGS (3)
  1. ETHYOL [Suspect]
     Indication: RADIOTHERAPY
  2. RADIATION THERAPY [Concomitant]
  3. CHEMOTHERAPY DRUG (UNKNOWN) [Concomitant]

REACTIONS (5)
  - EXTREMITY NECROSIS [None]
  - FOOT AMPUTATION [None]
  - PYREXIA [None]
  - RASH GENERALISED [None]
  - THROMBOSIS [None]
